FAERS Safety Report 7569200-6 (Version None)
Quarter: 2011Q2

REPORT INFORMATION
  Report Type: 
  Country: None (occurrence: None)
  Receive Date: 20110623
  Receipt Date: 20110614
  Transmission Date: 20111010
  Serious: Yes (Other)
  Sender: FDA-Public Use
  Company Number: PHHY2011TR31818

PATIENT
  Age: 34 Year
  Sex: Female

DRUGS (4)
  1. VALPROIC ACID [Suspect]
     Indication: EPILEPSY
     Dosage: 250 MG/DAY
  2. OXCARBAZEPINE [Suspect]
     Dosage: 1800 MG, UNK
  3. TOPIRAMATE [Suspect]
     Indication: EPILEPSY
     Dosage: 200 MG, UNK
  4. BARBEXACLONE [Suspect]
     Indication: EPILEPSY
     Dosage: 200 MG, UNK

REACTIONS (8)
  - DRUG INEFFECTIVE [None]
  - REFLEXES ABNORMAL [None]
  - CORTICAL DYSPLASIA [None]
  - UNRESPONSIVE TO STIMULI [None]
  - EPILEPSY [None]
  - SOMNOLENCE [None]
  - HYPERAMMONAEMIC ENCEPHALOPATHY [None]
  - ALTERED STATE OF CONSCIOUSNESS [None]
